FAERS Safety Report 9563748 (Version 1)
Quarter: 2013Q3

REPORT INFORMATION
  Report Type: Spontaneous
  Country: US (occurrence: None)
  Receive Date: 20130926
  Receipt Date: 20130926
  Transmission Date: 20140515
  Serious: Yes (Hospitalization)
  Sender: FDA-Public Use
  Company Number: C-13-0535-W

PATIENT
  Age: 47 Year
  Sex: Male

DRUGS (4)
  1. METROPROLOL SUCCINATE ER [Suspect]
     Indication: MITRAL VALVE PROLAPSE
     Dosage: 1 TABLET
     Dates: start: 20130802, end: 20130902
  2. SINGULAIR [Concomitant]
  3. LIPITOR [Concomitant]
  4. ASPIRIN [Concomitant]

REACTIONS (4)
  - Palpitations [None]
  - Blood pressure increased [None]
  - Therapeutic product ineffective [None]
  - Product substitution issue [None]
